FAERS Safety Report 21525615 (Version 1)
Quarter: 2022Q4

REPORT INFORMATION
  Report Type: Spontaneous
  Country: US (occurrence: US)
  Receive Date: 20221031
  Receipt Date: 20221031
  Transmission Date: 20230112
  Serious: Yes (Hospitalization)
  Sender: FDA-Public Use
  Company Number: US-STRIDES ARCOLAB LIMITED-2021SP029997

PATIENT
  Age: 30 Year
  Sex: Male

DRUGS (2)
  1. POTASSIUM CITRATE [Suspect]
     Active Substance: POTASSIUM CITRATE
     Indication: Hypokalaemia
     Dosage: UNK (RECEIVED APPROXIMATELY 340 MEQ)
     Route: 042
  2. POTASSIUM CITRATE [Suspect]
     Active Substance: POTASSIUM CITRATE
     Dosage: UNK (RECEIVED APPROXIMATELY 340 MEQ)
     Route: 048

REACTIONS (2)
  - Hyperkalaemia [Recovered/Resolved]
  - Off label use [Unknown]
